FAERS Safety Report 7519589-9 (Version None)
Quarter: 2011Q2

REPORT INFORMATION
  Report Type: 
  Country: None (occurrence: None)
  Receive Date: 20110602
  Receipt Date: 20110518
  Transmission Date: 20111010
  Serious: Yes (Hospitalization)
  Sender: FDA-Public Use
  Company Number: A0884289A

PATIENT
  Age: 22 Year
  Sex: Male
  Weight: 51.8 kg

DRUGS (6)
  1. SYNTHROID [Concomitant]
  2. DEPAKOTE [Concomitant]
     Indication: BIPOLAR DISORDER
     Dosage: 1000MG PER DAY
  3. LOPRESSOR [Concomitant]
     Dates: start: 20080428
  4. LAMICTAL [Suspect]
     Indication: BIPOLAR DISORDER
     Dosage: 100MG PER DAY
     Route: 048
     Dates: start: 20080325, end: 20080525
  5. INVEGA [Concomitant]
  6. LACTULOSE [Concomitant]

REACTIONS (9)
  - ERYTHEMA MULTIFORME [None]
  - HYPERGLYCAEMIA [None]
  - STAPHYLOCOCCAL INFECTION [None]
  - STEVENS-JOHNSON SYNDROME [None]
  - MALNUTRITION [None]
  - SKIN HYPERPIGMENTATION [None]
  - TOXIC EPIDERMAL NECROLYSIS [None]
  - HYPERMETABOLISM [None]
  - DRUG HYPERSENSITIVITY [None]
